FAERS Safety Report 17114361 (Version 1)
Quarter: 2019Q4

REPORT INFORMATION
  Report Type: Spontaneous
  Country: US (occurrence: US)
  Receive Date: 20191205
  Receipt Date: 20191205
  Transmission Date: 20200122
  Serious: No
  Sender: FDA-Public Use
  Company Number: US-GLAXOSMITHKLINE-US2019214261

PATIENT
  Sex: Male

DRUGS (1)
  1. LAMOTRIGINE TABLET [Suspect]
     Active Substance: LAMOTRIGINE
     Indication: PRODUCT USED FOR UNKNOWN INDICATION
     Dosage: 100 MG, BID
     Route: 048

REACTIONS (13)
  - Diplopia [Unknown]
  - Ill-defined disorder [Unknown]
  - Adverse drug reaction [Unknown]
  - Vision blurred [Unknown]
  - Fatigue [Unknown]
  - Confusional state [Unknown]
  - Headache [Unknown]
  - Insomnia [Unknown]
  - Hypertension [Unknown]
  - Pyrexia [Unknown]
  - Nausea [Unknown]
  - Visual impairment [Unknown]
  - Condition aggravated [Unknown]
